FAERS Safety Report 7357961-0 (Version None)
Quarter: 2011Q1

REPORT INFORMATION
  Report Type: 
  Country: None (occurrence: None)
  Receive Date: 20110317
  Receipt Date: 20110315
  Transmission Date: 20110831
  Serious: Yes (Hospitalization)
  Sender: FDA-Public Use
  Company Number: US-PFIZER INC-2011057169

PATIENT
  Sex: Female
  Weight: 49.887 kg

DRUGS (11)
  1. METOPROLOL [Concomitant]
     Indication: HYPERTENSION
     Dosage: 25 MG, 1X/DAY
  2. DILANTIN-125 [Suspect]
     Indication: CONVULSION
     Dosage: 300 MG, 3X/DAY
     Dates: start: 20100630
  3. RISPERIDONE [Concomitant]
     Indication: DEMENTIA
     Dosage: 0.5 MG, 1X/DAY
  4. ZOLOFT [Concomitant]
     Indication: ANTIDEPRESSANT THERAPY
     Dosage: 50 MG, 1X/DAY
  5. ZYRTEC [Concomitant]
     Indication: HYPERSENSITIVITY
     Dosage: 10 MG, 1X/DAY
  6. MULTI-VITAMINS [Concomitant]
     Indication: SUPPLEMENTATION THERAPY
     Dosage: UNK
  7. REMERON [Concomitant]
     Indication: DEMENTIA
     Dosage: 7.5 MG, 1X/DAY
  8. ACETYLSALICYLIC ACID [Concomitant]
     Indication: CARDIAC DISORDER
     Dosage: 81 MG, 1X/DAY
  9. ZOCOR [Concomitant]
     Indication: BLOOD CHOLESTEROL ABNORMAL
     Dosage: 10 MG, 1X/DAY
  10. GALANTAMINE [Concomitant]
     Indication: DEMENTIA
     Dosage: 24 MG, 1X/DAY
  11. NAMENDA [Concomitant]
     Indication: DEMENTIA
     Dosage: 5 MG, 2X/DAY

REACTIONS (4)
  - SLUGGISHNESS [None]
  - URINARY TRACT INFECTION [None]
  - GAIT DISTURBANCE [None]
  - VULVOVAGINAL MYCOTIC INFECTION [None]
